FAERS Safety Report 5339515-0 (Version None)
Quarter: 2007Q2

REPORT INFORMATION
  Report Type: 
  Country: None (occurrence: None)
  Receive Date: 20070521
  Receipt Date: 20070508
  Transmission Date: 20071010
  Serious: Yes (Hospitalization)
  Sender: FDA-Public Use
  Company Number: B0471103A

PATIENT
  Age: 43 Year
  Sex: Female

DRUGS (2)
  1. ALBENDAZOLE (FORMULATION UNKNOWN) (GENERIC) (ALBENDAZOLE) [Suspect]
     Dosage: SINGLE DOSE
  2. QUINFAMIDE [Concomitant]

REACTIONS (7)
  - BIOPSY BONE MARROW ABNORMAL [None]
  - EOSINOPHIL COUNT ABNORMAL [None]
  - EOSINOPHILIC FASCIITIS [None]
  - GRANULOCYTE COUNT INCREASED [None]
  - NEUTROPENIA [None]
  - NO THERAPEUTIC RESPONSE [None]
  - WHITE BLOOD CELL COUNT DECREASED [None]
